FAERS Safety Report 8052323-5 (Version None)
Quarter: 2012Q1

REPORT INFORMATION
  Report Type: 
  Country: None (occurrence: None)
  Receive Date: 20120118
  Receipt Date: 20120109
  Transmission Date: 20120608
  Serious: Yes (Hospitalization)
  Sender: FDA-Public Use
  Company Number: US-BAYER-201036069NA

PATIENT
  Age: 42 Year
  Sex: Female
  Weight: 77.098 kg

DRUGS (1)
  1. YASMIN [Suspect]
     Indication: PREMENSTRUAL SYNDROME
     Dosage: UNK
     Dates: start: 20080101, end: 20090101

REACTIONS (10)
  - FLATULENCE [None]
  - CHOLECYSTITIS ACUTE [None]
  - ANXIETY [None]
  - DEPRESSION [None]
  - GASTROOESOPHAGEAL REFLUX DISEASE [None]
  - DYSPEPSIA [None]
  - ABDOMINAL DISTENSION [None]
  - CONSTIPATION [None]
  - CHOLECYSTECTOMY [None]
  - DIARRHOEA [None]
